FAERS Safety Report 25132007 (Version 2)
Quarter: 2025Q2

REPORT INFORMATION
  Report Type: Spontaneous
  Country: US (occurrence: US)
  Receive Date: 20250327
  Receipt Date: 20250424
  Transmission Date: 20250717
  Serious: No
  Sender: HETERO
  Company Number: US-HETERO-HET2025US01458

PATIENT
  Sex: Female

DRUGS (1)
  1. DIMETHYL FUMARATE [Suspect]
     Active Substance: DIMETHYL FUMARATE
     Indication: Product used for unknown indication
     Route: 065

REACTIONS (4)
  - Headache [Unknown]
  - Flushing [Unknown]
  - Therapeutic response changed [Unknown]
  - Product substitution issue [Unknown]
